FAERS Safety Report 4762752-0 (Version None)
Quarter: 2005Q3

REPORT INFORMATION
  Report Type: 
  Country: None (occurrence: None)
  Receive Date: 20050907
  Receipt Date: 20050711
  Transmission Date: 20060218
  Serious: Yes (Other)
  Sender: FDA-Public Use
  Company Number: US-MERCK-0507USA01573

PATIENT
  Age: 76 Year
  Sex: Female
  Weight: 66 kg

DRUGS (7)
  1. FOSAMAX [Suspect]
     Indication: OSTEOPOROSIS
     Route: 048
     Dates: start: 20001001, end: 20050711
  2. FOSAMAX [Suspect]
     Route: 048
     Dates: start: 19970310, end: 20001001
  3. FOSAMAX [Suspect]
     Indication: OSTEOPENIA
     Route: 048
     Dates: start: 20001001, end: 20050711
  4. FOSAMAX [Suspect]
     Route: 048
     Dates: start: 19970310, end: 20001001
  5. DIOVAN [Concomitant]
     Indication: HYPERTENSION
     Route: 048
  6. LANTUS [Concomitant]
     Indication: DIABETES MELLITUS
     Route: 058
  7. NOVOLOG [Concomitant]
     Route: 058

REACTIONS (2)
  - BONE DENSITY DECREASED [None]
  - SPINAL COMPRESSION FRACTURE [None]
